FAERS Safety Report 9861727 (Version 1)
Quarter: 2014Q1

REPORT INFORMATION
  Report Type: Spontaneous
  Country: US (occurrence: None)
  Receive Date: 20140131
  Receipt Date: 20140131
  Transmission Date: 20141002
  Serious: Yes (Hospitalization)
  Sender: FDA-Public Use
  Company Number: None

PATIENT
  Age: 94 Year
  Sex: Female
  Weight: 63.5 kg

DRUGS (4)
  1. CARDIZEM [Suspect]
     Indication: HEART RATE ABNORMAL
     Dates: start: 20140108, end: 20140108
  2. PROTONIX [Concomitant]
  3. ASPIRIN [Concomitant]
  4. LIPITOR [Concomitant]

REACTIONS (2)
  - Atrial fibrillation [None]
  - Heart rate increased [None]
